FAERS Safety Report 21168912 (Version 1)
Quarter: 2022Q3

REPORT INFORMATION
  Report Type: Spontaneous
  Country: None (occurrence: US)
  Receive Date: 20220803
  Receipt Date: 20220803
  Transmission Date: 20221026
  Serious: Yes (Disabling, Other)
  Sender: FDA-Public Use
  Company Number: US-Edgewell Personal Care, LLC-2131502

PATIENT
  Sex: Male

DRUGS (1)
  1. HAWAIIAN TROPIC EVERYDAY ACTIVE HIGH PERFORMANCE SPORT SUNSCREEN SPF30 [Suspect]
     Active Substance: AVOBENZONE\HOMOSALATE\OCTOCRYLENE
     Indication: Prophylaxis against solar radiation
     Route: 061
     Dates: start: 20220717, end: 20220717

REACTIONS (3)
  - Impaired work ability [Unknown]
  - Dermatitis contact [Unknown]
  - Chemical burn [Unknown]

NARRATIVE: CASE EVENT DATE: 20220717
